FAERS Safety Report 17668689 (Version 1)
Quarter: 2020Q2

REPORT INFORMATION
  Report Type: Spontaneous
  Country: US (occurrence: US)
  Receive Date: 20200415
  Receipt Date: 20200415
  Transmission Date: 20200713
  Serious: No
  Sender: FDA-Public Use
  Company Number: US-AUROBINDO-AUR-APL-2020-010558

PATIENT
  Age: 63 Year
  Sex: Male

DRUGS (2)
  1. BUPROPION. [Suspect]
     Active Substance: BUPROPION
     Indication: DEPRESSION
     Dosage: 1 DOSAGE FORM, DAILY
     Route: 048
     Dates: start: 2017
  2. TADALAFIL TABLETS USP 20 MG [Suspect]
     Active Substance: TADALAFIL
     Indication: ERECTILE DYSFUNCTION
     Dosage: 1 DOSAGE FORM, DAILY
     Route: 048
     Dates: start: 201709

REACTIONS (1)
  - Drug ineffective [Unknown]
